FAERS Safety Report 5868594-7 (Version None)
Quarter: 2008Q3

REPORT INFORMATION
  Report Type: 
  Country: None (occurrence: None)
  Receive Date: 20080903
  Receipt Date: 20080820
  Transmission Date: 20090109
  Serious: Yes (Hospitalization)
  Sender: FDA-Public Use
  Company Number: US-ELI_LILLY_AND_COMPANY-US200808004050

PATIENT
  Sex: Female

DRUGS (2)
  1. FORTEO [Suspect]
  2. LASIX [Concomitant]

REACTIONS (10)
  - CELLULITIS [None]
  - DEHYDRATION [None]
  - DYSPHONIA [None]
  - FALL [None]
  - FLUID RETENTION [None]
  - MALAISE [None]
  - OEDEMA PERIPHERAL [None]
  - PAIN IN EXTREMITY [None]
  - PRURITUS [None]
  - RASH [None]
